FAERS Safety Report 4514553-6 (Version None)
Quarter: 2004Q4

REPORT INFORMATION
  Report Type: 
  Country: None (occurrence: None)
  Receive Date: 20041126
  Receipt Date: 20041110
  Transmission Date: 20050328
  Serious: Yes (Hospitalization, Other)
  Sender: FDA-Public Use
  Company Number: SGB1-2004-00408

PATIENT
  Age: 34 Year
  Sex: Male

DRUGS (1)
  1. AGRYLIN [Suspect]
     Indication: ESSENTIAL THROMBOCYTHAEMIA
     Dosage: ORAL
     Route: 048

REACTIONS (2)
  - CARDIOTOXICITY [None]
  - MYOCARDITIS [None]
